FAERS Safety Report 19874581 (Version 2)
Quarter: 2021Q4

REPORT INFORMATION
  Report Type: Spontaneous
  Country: US (occurrence: US)
  Receive Date: 20210923
  Receipt Date: 20211022
  Transmission Date: 20220303
  Serious: No
  Sender: FDA-Public Use
  Company Number: US-ORGANON-O2109USA001188

PATIENT
  Age: 56 Year
  Sex: Male

DRUGS (3)
  1. SINEMET [Suspect]
     Active Substance: CARBIDOPA\LEVODOPA
     Indication: Dyskinesia
     Dosage: UNK
     Route: 048
  2. SINEMET [Suspect]
     Active Substance: CARBIDOPA\LEVODOPA
     Dosage: CUT DOWN DOSAGE OF SINEMET
     Route: 048
  3. GOCOVRI [Concomitant]
     Active Substance: AMANTADINE
     Indication: Dyskinesia
     Dosage: 274 MILLIGRAM, HS, 1X/DAY
     Route: 048
     Dates: start: 20210501

REACTIONS (6)
  - Dyskinesia [Not Recovered/Not Resolved]
  - Asthenia [Not Recovered/Not Resolved]
  - Tremor [Recovered/Resolved]
  - Sluggishness [Not Recovered/Not Resolved]
  - Product dose omission issue [Unknown]
  - Constipation [Not Recovered/Not Resolved]

NARRATIVE: CASE EVENT DATE: 20210101
